FAERS Safety Report 4430604-1 (Version None)
Quarter: 2004Q3

REPORT INFORMATION
  Report Type: 
  Country: None (occurrence: None)
  Receive Date: 20040818
  Receipt Date: 20040803
  Transmission Date: 20050211
  Serious: Yes (Hospitalization, Disabling)
  Sender: FDA-Public Use
  Company Number: 04P-062-0269610-00

PATIENT

DRUGS (1)
  1. HUMIRA [Suspect]

REACTIONS (1)
  - DIVERTICULAR PERFORATION [None]
